FAERS Safety Report 17478746 (Version 1)
Quarter: 2020Q1

REPORT INFORMATION
  Report Type: Spontaneous
  Country: FR (occurrence: FR)
  Receive Date: 20200228
  Receipt Date: 20200228
  Transmission Date: 20200409
  Serious: Yes (Death, Other)
  Sender: FDA-Public Use
  Company Number: FR-AMGEN-FRASP2020031897

PATIENT

DRUGS (3)
  1. FLUDARABINE [Suspect]
     Active Substance: FLUDARABINE PHOSPHATE
     Indication: ACUTE MYELOID LEUKAEMIA
     Route: 065
  2. FILGRASTIM [Suspect]
     Active Substance: FILGRASTIM
     Indication: ACUTE MYELOID LEUKAEMIA
     Dosage: 400 MICROGRAM/SQ. METER, QD
     Route: 065
  3. CYTARABINE. [Suspect]
     Active Substance: CYTARABINE
     Indication: ACUTE MYELOID LEUKAEMIA
     Dosage: 2000 MILLIGRAM/SQ. METER, QD (DAYS 1 TO 4)
     Route: 065

REACTIONS (10)
  - Cardiac arrest [Unknown]
  - Febrile neutropenia [Unknown]
  - Cardiac failure congestive [Unknown]
  - Neutropenia [Unknown]
  - Thrombocytopenia [Unknown]
  - Death [Fatal]
  - Ejection fraction decreased [Unknown]
  - Atrial fibrillation [Unknown]
  - Infection [Unknown]
  - Chest pain [Unknown]
